FAERS Safety Report 19845630 (Version 1)
Quarter: 2021Q3

REPORT INFORMATION
  Report Type: Spontaneous
  Country: US (occurrence: US)
  Receive Date: 20210916
  Receipt Date: 20210916
  Transmission Date: 20211014
  Serious: Yes (Other)
  Sender: FDA-Public Use
  Company Number: US-PFIZER INC-202101191305

PATIENT
  Age: 78 Year

DRUGS (1)
  1. GABAPENTIN. [Suspect]
     Active Substance: GABAPENTIN
     Dosage: 14 DF

REACTIONS (5)
  - Chondropathy [Unknown]
  - Neuropathy peripheral [Unknown]
  - Pain [Unknown]
  - Drug ineffective [Unknown]
  - Illness [Unknown]
